FAERS Safety Report 9246030 (Version 4)
Quarter: 2013Q2

REPORT INFORMATION
  Report Type: Report from Study
  Country: CA (occurrence: CA)
  Receive Date: 20130422
  Receipt Date: 20130503
  Transmission Date: 20140414
  Serious: Yes (Hospitalization, Other)
  Sender: FDA-Public Use
  Company Number: CA-ROCHE-1214033

PATIENT
  Age: 34 Year
  Sex: Female
  Weight: 109.5 kg

DRUGS (5)
  1. RITUXAN [Suspect]
     Indication: GRANULOMATOSIS WITH POLYANGIITIS
     Route: 042
     Dates: start: 20120622
  2. DIPHENHYDRAMINE HCL [Concomitant]
     Indication: PREMEDICATION
     Route: 048
     Dates: start: 20120622
  3. ACETAMINOPHEN [Concomitant]
     Indication: PREMEDICATION
     Route: 048
     Dates: start: 20120622
  4. METHYLPREDNISOLONE [Concomitant]
     Indication: PREMEDICATION
     Route: 042
     Dates: start: 20120622
  5. SEPTRA [Concomitant]

REACTIONS (10)
  - Sinusitis [Not Recovered/Not Resolved]
  - Sinus congestion [Not Recovered/Not Resolved]
  - Pyrexia [Unknown]
  - Eyelid oedema [Not Recovered/Not Resolved]
  - Hearing impaired [Unknown]
  - Eye inflammation [Not Recovered/Not Resolved]
  - Tension headache [Not Recovered/Not Resolved]
  - Nodule [Not Recovered/Not Resolved]
  - Pleuritic pain [Not Recovered/Not Resolved]
  - Arthralgia [Not Recovered/Not Resolved]
